FAERS Safety Report 4468001-5 (Version None)
Quarter: 2004Q4

REPORT INFORMATION
  Report Type: 
  Country: None (occurrence: None)
  Receive Date: 20041004
  Receipt Date: 20041004
  Transmission Date: 20050328
  Serious: Yes (Other)
  Sender: FDA-Public Use
  Company Number: None

PATIENT
  Age: 77 Year
  Sex: Male
  Weight: 76.7 kg

DRUGS (4)
  1. OMEPRAZOLE [Suspect]
  2. LOVASTATIN [Concomitant]
  3. INSULIN SYRINGE [Concomitant]
  4. HYDROXYZINE HCL [Concomitant]

REACTIONS (1)
  - RASH [None]
